FAERS Safety Report 19705306 (Version 1)
Quarter: 2021Q3

REPORT INFORMATION
  Report Type: Spontaneous
  Country: AU (occurrence: AU)
  Receive Date: 20210816
  Receipt Date: 20210816
  Transmission Date: 20211014
  Serious: Yes (Other)
  Sender: FDA-Public Use
  Company Number: AU-MYLANLABS-2021M1050110

PATIENT
  Sex: Female

DRUGS (1)
  1. SPIRACTIN (SPIRONOLACTONE) [Suspect]
     Active Substance: SPIRONOLACTONE
     Indication: HYPERTENSION
     Dosage: UNK, 3XW (? TABLET 3 TIMES A WEEK FOR PAST FEW MONTHS)

REACTIONS (3)
  - Chronic kidney disease [Unknown]
  - Contraindicated product administered [Unknown]
  - Off label use [Unknown]
